FAERS Safety Report 8067718-3 (Version None)
Quarter: 2012Q1

REPORT INFORMATION
  Report Type: 
  Country: None (occurrence: None)
  Receive Date: 20120124
  Receipt Date: 20120123
  Transmission Date: 20120608
  Serious: Yes (Other)
  Sender: FDA-Public Use
  Company Number: NO-PFIZER INC-2011306000

PATIENT
  Sex: Female

DRUGS (4)
  1. AMLODIPINE [Concomitant]
     Indication: HYPERTENSION
     Dosage: UNK
     Dates: start: 20101025
  2. LIPITOR [Suspect]
     Indication: CEREBRAL INFARCTION
     Dosage: 40 MG, UNK
     Route: 048
     Dates: start: 20100101, end: 20110617
  3. PLAVIX [Concomitant]
     Indication: ANTICOAGULANT THERAPY
     Dosage: UNK
     Dates: start: 20101025
  4. ATACAND HCT [Concomitant]
     Indication: HYPERTENSION
     Dosage: [CANDESARTAN CILEXETIL 16MG] / [HYDROCHLOROTHIAZIDE 12.5 MG], UNK
     Dates: start: 20101025, end: 20110818

REACTIONS (5)
  - MUSCULAR WEAKNESS [None]
  - CHEST DISCOMFORT [None]
  - MYALGIA [None]
  - PYREXIA [None]
  - BLOOD CREATINE PHOSPHOKINASE INCREASED [None]
